FAERS Safety Report 12204115 (Version 1)
Quarter: 2016Q1

REPORT INFORMATION
  Report Type: Spontaneous
  Country: US (occurrence: US)
  Receive Date: 20160323
  Receipt Date: 20160323
  Transmission Date: 20160526
  Serious: No
  Sender: FDA-Public Use
  Company Number: US-PFIZER INC-2016125557

PATIENT
  Sex: Female

DRUGS (1)
  1. ADVIL [Suspect]
     Active Substance: IBUPROFEN
     Dosage: 400 MG, (200 MG 2) EVERY 5 HOURS
     Dates: start: 201602, end: 20160224

REACTIONS (3)
  - Condition aggravated [Recovering/Resolving]
  - Product formulation issue [Recovering/Resolving]
  - Peripheral swelling [Recovering/Resolving]
